FAERS Safety Report 5919997-3 (Version None)
Quarter: 2008Q4

REPORT INFORMATION
  Report Type: 
  Country: None (occurrence: None)
  Receive Date: 20081014
  Receipt Date: 20081002
  Transmission Date: 20090506
  Serious: Yes (Hospitalization)
  Sender: FDA-Public Use
  Company Number: 23020K07USA

PATIENT
  Age: 15 Year
  Sex: Female
  Weight: 63 kg

DRUGS (3)
  1. REBIF [Suspect]
     Indication: OFF LABEL USE
     Dosage: SEE IMAGE
     Route: 058
     Dates: start: 20040707, end: 20061201
  2. REBIF [Suspect]
     Indication: OFF LABEL USE
     Dosage: SEE IMAGE
     Route: 058
     Dates: end: 20070501
  3. ZOLOFT [Concomitant]

REACTIONS (5)
  - BLINDNESS UNILATERAL [None]
  - CONDITION AGGRAVATED [None]
  - HEMIPARESIS [None]
  - HYPOAESTHESIA [None]
  - MULTIPLE SCLEROSIS [None]
